FAERS Safety Report 10756428 (Version 3)
Quarter: 2015Q2

REPORT INFORMATION
  Report Type: Spontaneous
  Country: US (occurrence: US)
  Receive Date: 20150202
  Receipt Date: 20150409
  Transmission Date: 20150821
  Serious: No
  Sender: FDA-Public Use
  Company Number: US-009507513-1502USA000497

PATIENT
  Sex: Female

DRUGS (1)
  1. NUVARING [Suspect]
     Active Substance: ETHINYL ESTRADIOL\ETONOGESTREL
     Indication: CONTRACEPTION
     Dosage: 1 DF, STRENGTH: 0.12/0.015/24 MG
     Route: 067
     Dates: start: 201412

REACTIONS (3)
  - Product shape issue [Unknown]
  - Wrong technique in drug usage process [Unknown]
  - No adverse event [Unknown]
